FAERS Safety Report 6198211-0 (Version None)
Quarter: 2009Q2

REPORT INFORMATION
  Report Type: 
  Country: None (occurrence: None)
  Receive Date: 20090521
  Receipt Date: 20090507
  Transmission Date: 20091009
  Serious: Yes (Death)
  Sender: FDA-Public Use
  Company Number: DE-MERCK-0905USA02328

PATIENT
  Age: 64 Year
  Sex: Male

DRUGS (4)
  1. MODURETIC 5-50 [Suspect]
     Indication: HYPERTENSION
     Route: 048
  2. CAPTOPRIL [Suspect]
     Indication: HYPERTENSION
     Route: 065
  3. DIETHYLSTILBESTROL [Suspect]
     Indication: PROSTATE CANCER
     Route: 065
  4. PRAVIDEL [Suspect]
     Route: 065

REACTIONS (1)
  - ANGIOEDEMA [None]
